FAERS Safety Report 5367627-4 (Version None)
Quarter: 2007Q2

REPORT INFORMATION
  Report Type: 
  Country: None (occurrence: None)
  Receive Date: 20070622
  Receipt Date: 20070104
  Transmission Date: 20071010
  Serious: No
  Sender: FDA-Public Use
  Company Number: US-ASTRAZENECA-2007UW00215

PATIENT
  Age: 85 Year
  Sex: Female

DRUGS (7)
  1. PULMICORT RESPULES [Suspect]
     Indication: EMPHYSEMA
     Dosage: 0.5 MG ONCE IN MORNING WITH DUONEB AND ONCE AT NIGHT WITH DUONEB
     Route: 055
     Dates: start: 20061204
  2. DUONEB [Concomitant]
     Indication: EMPHYSEMA
     Route: 055
  3. TOPROL-XL [Concomitant]
  4. DIURETIC [Concomitant]
  5. FOSAMAX [Concomitant]
  6. QUININE SULFATE [Concomitant]
  7. COMBIVENT [Concomitant]

REACTIONS (2)
  - DRY THROAT [None]
  - DYSPHONIA [None]
